FAERS Safety Report 11111542 (Version 1)
Quarter: 2015Q2

REPORT INFORMATION
  Report Type: Spontaneous
  Country: UA (occurrence: UA)
  Receive Date: 20150514
  Receipt Date: 20150514
  Transmission Date: 20150821
  Serious: Yes (Death)
  Sender: FDA-Public Use
  Company Number: UA-CIPLA LTD.-2015UA03758

PATIENT

DRUGS (3)
  1. CISPLATIN. [Suspect]
     Active Substance: CISPLATIN
     Indication: LUNG CANCER METASTATIC
     Dosage: 80 MG/M2, ON DAY 1 EVERY 3 WEEKS
     Route: 042
  2. AXITINIB [Suspect]
     Active Substance: AXITINIB
     Indication: LUNG CANCER METASTATIC
     Dosage: 2 MG, BID
     Route: 048
  3. GEMCITABINE [Suspect]
     Active Substance: GEMCITABINE\GEMCITABINE HYDROCHLORIDE
     Indication: LUNG CANCER METASTATIC
     Dosage: 1,250 MG/M2 ON DAYS 1 AND 8 OF EACH 3-WEEK CYCLE
     Route: 042

REACTIONS (2)
  - Non-small cell lung cancer [Fatal]
  - Haemoptysis [Fatal]
